FAERS Safety Report 8807478 (Version 5)
Quarter: 2012Q4

REPORT INFORMATION
  Report Type: 
  Country: US (occurrence: US)
  Receive Date: 20120925
  Receipt Date: 20121126
  Transmission Date: 20130627
  Serious: No
  Sender: FDA-Public Use
  Company Number: US-PFIZER INC-2012236980

PATIENT
  Age: 50 Year
  Sex: Female
  Weight: 76.19 kg

DRUGS (9)
  1. NEURONTIN [Suspect]
     Indication: GRAND MAL SEIZURE
     Dosage: UNK
     Route: 048
     Dates: start: 2011
  2. NEURONTIN [Suspect]
     Dosage: UNK
     Route: 048
     Dates: start: 20120831, end: 20120902
  3. DILANTIN [Concomitant]
     Indication: GRAND MAL SEIZURE
     Dosage: 225mg in the morning and 250mg at bedtime
  4. KEPPRA [Concomitant]
     Indication: GRAND MAL SEIZURE
     Dosage: 750 mg, 2x/day
  5. XANAX [Concomitant]
     Dosage: 1 mg, 3x/day, (TID)
  6. XANAX [Concomitant]
     Dosage: 2 mg at night (HS)
  7. SEROQUEL [Concomitant]
     Dosage: 200 mg in the morning (AM) and 600 mg in the afternoon (PM)
  8. SYNTHROID [Concomitant]
     Dosage: UNK
  9. ESTRADIOL [Concomitant]
     Dosage: UNK

REACTIONS (5)
  - Diarrhoea [Recovered/Resolved]
  - Vomiting [Recovered/Resolved]
  - Malaise [Recovered/Resolved]
  - Dysgeusia [Recovered/Resolved]
  - Off label use [Recovered/Resolved]
